FAERS Safety Report 6396168-0 (Version None)
Quarter: 2009Q4

REPORT INFORMATION
  Report Type: 
  Country: None (occurrence: None)
  Receive Date: 20091009
  Receipt Date: 20090925
  Transmission Date: 20100525
  Serious: Yes (Death, Hospitalization, Other)
  Sender: FDA-Public Use
  Company Number: FR-GENENTECH-292045

PATIENT
  Sex: Male

DRUGS (8)
  1. RITUXIMAB [Suspect]
     Indication: MANTLE CELL LYMPHOMA
     Dosage: 375 MG/KG, Q3W
     Route: 042
     Dates: start: 20090411, end: 20090426
  2. CYTARABINE [Suspect]
     Indication: MANTLE CELL LYMPHOMA
     Dosage: 2000 MG/M2, UNK
     Route: 042
     Dates: start: 20090408, end: 20090429
  3. CISPLATIN [Suspect]
     Indication: MANTLE CELL LYMPHOMA
     Dosage: 100 MG/M2, UNK
     Route: 042
     Dates: start: 20090408
  4. DEXAMETHASONE 0.5MG TAB [Suspect]
     Indication: MANTLE CELL LYMPHOMA
     Dosage: 40 MG, Q21D
     Route: 065
     Dates: start: 20090408
  5. LENOGRASTIM [Concomitant]
     Indication: DRUG USE FOR UNKNOWN INDICATION
     Dosage: UNK
     Dates: start: 20090301
  6. AERIUS [Concomitant]
     Indication: DRUG USE FOR UNKNOWN INDICATION
     Dosage: UNK
     Dates: start: 20090301
  7. NEXIUM [Concomitant]
     Indication: DRUG USE FOR UNKNOWN INDICATION
     Dosage: UNK
     Dates: start: 20090331
  8. DELURSAN [Concomitant]
     Indication: DRUG USE FOR UNKNOWN INDICATION
     Dosage: UNK
     Dates: start: 20090418

REACTIONS (12)
  - BRAIN STEM HAEMORRHAGE [None]
  - CHOLESTASIS [None]
  - DRUG TOXICITY [None]
  - FALL [None]
  - HAEMORRHAGIC STROKE [None]
  - HEPATIC NECROSIS [None]
  - HYPERBILIRUBINAEMIA [None]
  - ORTHOSTATIC HYPOTENSION [None]
  - SKIN LACERATION [None]
  - SUBDURAL HAEMATOMA [None]
  - SYNCOPE [None]
  - VOMITING [None]
